FAERS Safety Report 9670512 (Version 5)
Quarter: 2014Q1

REPORT INFORMATION
  Report Type: Report from Study
  Country: US (occurrence: US)
  Receive Date: 20131106
  Receipt Date: 20140303
  Transmission Date: 20141002
  Serious: Yes (Hospitalization)
  Sender: FDA-Public Use
  Company Number: US-BIOGENIDEC-2013BI104065

PATIENT
  Age: 56 Year
  Sex: Female
  Weight: 57 kg

DRUGS (24)
  1. NATALIZUMAB [Suspect]
     Indication: SECONDARY PROGRESSIVE MULTIPLE SCLEROSIS
     Route: 042
     Dates: start: 20121227, end: 20131003
  2. TEGRETOL [Concomitant]
     Indication: NEURALGIA
     Route: 048
     Dates: start: 1999
  3. TEGRETOL [Concomitant]
     Indication: NEURALGIA
     Route: 048
  4. DETROL [Concomitant]
     Indication: BLADDER DYSFUNCTION
     Route: 048
     Dates: start: 1992
  5. DETROL [Concomitant]
     Indication: BLADDER DYSFUNCTION
     Route: 048
     Dates: start: 20121207
  6. TYLENOL [Concomitant]
     Indication: BACK PAIN
     Route: 048
     Dates: start: 2007
  7. TYLENOL [Concomitant]
     Indication: BACK PAIN
     Route: 048
  8. TOPAMAX [Concomitant]
     Indication: NEURALGIA
     Route: 048
     Dates: start: 200906
  9. TOPAMAX [Concomitant]
     Indication: NEURALGIA
     Route: 048
  10. TOPAMAX [Concomitant]
     Indication: NEURALGIA
     Route: 048
  11. TOPICAL ESTROGEN [Concomitant]
     Indication: HORMONE REPLACEMENT THERAPY
     Route: 067
     Dates: start: 2004
  12. NARATRIPTAN [Concomitant]
     Indication: MIGRAINE
     Route: 048
     Dates: start: 201107
  13. PASSION FLOWER [Concomitant]
     Indication: SUPPLEMENTATION THERAPY
     Route: 048
     Dates: start: 20121206
  14. MELALEUCA OLIGO VITALITY TOTAL [Concomitant]
     Indication: VITAMIN SUPPLEMENTATION
     Route: 048
     Dates: start: 19900101
  15. GABAPENTIN [Concomitant]
     Indication: TRIGEMINAL NEURALGIA
     Route: 048
     Dates: start: 20130128
  16. GABAPENTIN [Concomitant]
     Indication: TRIGEMINAL NEURALGIA
  17. PROTONIX [Concomitant]
     Indication: GASTRITIS
     Route: 048
     Dates: start: 20130318
  18. PROTONIX [Concomitant]
     Indication: HIATUS HERNIA
     Route: 048
     Dates: start: 20130318
  19. ACETAMINOPHEN [Concomitant]
     Indication: PYREXIA
     Route: 048
     Dates: start: 20130316
  20. ACETAMINOPHEN [Concomitant]
     Indication: PAIN
     Route: 048
     Dates: start: 20130316
  21. AMBROTOSE [Concomitant]
     Indication: NUTRITIONAL SUPPLEMENTATION
     Route: 048
     Dates: start: 1990
  22. BACLOFEN [Concomitant]
     Route: 048
  23. PROMETHAZINE [Concomitant]
     Indication: NAUSEA
     Route: 048
  24. PROMETHAZINE [Concomitant]
     Indication: VOMITING
     Route: 048

REACTIONS (1)
  - Cellulitis [Recovered/Resolved]
